FAERS Safety Report 5134986-7 (Version None)
Quarter: 2006Q4

REPORT INFORMATION
  Report Type: 
  Country: None (occurrence: None)
  Receive Date: 20061019
  Receipt Date: 20061011
  Transmission Date: 20070319
  Serious: Yes (Hospitalization)
  Sender: FDA-Public Use
  Company Number: 2006BI007598

PATIENT
  Age: 44 Year
  Sex: Female

DRUGS (2)
  1. AVONEX [Suspect]
     Indication: MULTIPLE SCLEROSIS
     Dosage: 30 UG;QW;IM
     Route: 030
     Dates: start: 20020521
  2. AVONEX [Suspect]
     Indication: MULTIPLE SCLEROSIS
     Dosage: IM
     Route: 030

REACTIONS (11)
  - ARTHRITIS [None]
  - INTERVERTEBRAL DISC DEGENERATION [None]
  - MENINGITIS [None]
  - MULTIPLE SCLEROSIS RELAPSE [None]
  - NEURALGIA [None]
  - PAIN [None]
  - PITUITARY TUMOUR [None]
  - RETINAL NEOPLASM [None]
  - SCIATICA [None]
  - TUMOUR HAEMORRHAGE [None]
  - UNEVALUABLE EVENT [None]
